FAERS Safety Report 9775637 (Version 2)
Quarter: 2014Q1

REPORT INFORMATION
  Report Type: Spontaneous
  Country: US (occurrence: US)
  Receive Date: 20131220
  Receipt Date: 20140317
  Transmission Date: 20141002
  Serious: Yes (Other)
  Sender: FDA-Public Use
  Company Number: US-GILEAD-2013-0090297

PATIENT
  Sex: Male

DRUGS (2)
  1. LETAIRIS [Suspect]
     Indication: PRODUCT USED FOR UNKNOWN INDICATION
     Dosage: 5 MG, QD
     Route: 048
     Dates: start: 20131121
  2. WARFARIN SODIUM [Concomitant]

REACTIONS (5)
  - Weight increased [Unknown]
  - Local swelling [Unknown]
  - Nasal congestion [Unknown]
  - Fluid retention [Unknown]
  - Oedema [Unknown]
